FAERS Safety Report 24156478 (Version 1)
Quarter: 2024Q3

REPORT INFORMATION
  Report Type: Spontaneous
  Country: US (occurrence: US)
  Receive Date: 20240731
  Receipt Date: 20240731
  Transmission Date: 20241017
  Serious: No
  Sender: APPCO PHARMA
  Company Number: US-Appco Pharma LLC-2159824

PATIENT
  Sex: Male

DRUGS (2)
  1. MODAFINIL [Suspect]
     Active Substance: MODAFINIL
     Indication: Anxiety
     Route: 065
     Dates: start: 202406
  2. MODAFINIL [Suspect]
     Active Substance: MODAFINIL
     Indication: Sleep apnoea syndrome

REACTIONS (2)
  - Drug ineffective [Unknown]
  - Product shape issue [Unknown]
